FAERS Safety Report 8115510-3 (Version None)
Quarter: 2012Q1

REPORT INFORMATION
  Report Type: 
  Country: None (occurrence: None)
  Receive Date: 20120206
  Receipt Date: 20120201
  Transmission Date: 20120608
  Serious: Yes (Other)
  Sender: FDA-Public Use
  Company Number: US-AMGEN-USASP2012006879

PATIENT
  Age: 63 Year
  Sex: Male

DRUGS (1)
  1. ENBREL [Suspect]
     Indication: ANKYLOSING SPONDYLITIS
     Dosage: 50 MG, QWK
     Dates: start: 20100204, end: 20120101

REACTIONS (5)
  - HIATUS HERNIA [None]
  - BACK PAIN [None]
  - SINUSITIS [None]
  - PULMONARY FIBROSIS [None]
  - UPPER RESPIRATORY TRACT INFECTION [None]
